FAERS Safety Report 5512461-5 (Version None)
Quarter: 2007Q4

REPORT INFORMATION
  Report Type: 
  Country: None (occurrence: None)
  Receive Date: 20071112
  Receipt Date: 20070220
  Transmission Date: 20080405
  Serious: No
  Sender: FDA-Public Use
  Company Number: A0640287A

PATIENT
  Sex: Female

DRUGS (3)
  1. AVANDAMET [Suspect]
     Dosage: 1TAB PER DAY
     Route: 048
     Dates: start: 20070101
  2. BIRTH CONTROL [Concomitant]
  3. AMITRIPTYLINE HCL [Concomitant]

REACTIONS (6)
  - ERYTHEMA [None]
  - FEELING HOT [None]
  - LOCAL SWELLING [None]
  - PARAESTHESIA [None]
  - PHOTOSENSITIVITY REACTION [None]
  - RASH [None]
